FAERS Safety Report 5199181-4 (Version None)
Quarter: 2007Q1

REPORT INFORMATION
  Report Type: 
  Country: None (occurrence: None)
  Receive Date: 20070104
  Receipt Date: 20061226
  Transmission Date: 20070707
  Serious: Yes (Other)
  Sender: FDA-Public Use
  Company Number: US-PFIZER INC-2006145398

PATIENT
  Sex: Female
  Weight: 63.1 kg

DRUGS (9)
  1. SUTENT [Suspect]
     Indication: RENAL CELL CARCINOMA STAGE UNSPECIFIED
     Route: 048
  2. KEFLEX [Suspect]
     Indication: PROPHYLAXIS
  3. CELEXA [Concomitant]
  4. ATENOLOL [Concomitant]
  5. SYNTHROID [Concomitant]
  6. LOTENSIN [Concomitant]
  7. PLENDIL [Concomitant]
  8. HYDROCHLOROTHIAZIDE [Concomitant]
  9. LOVASTATIN [Concomitant]

REACTIONS (7)
  - EPISTAXIS [None]
  - HYPERSENSITIVITY [None]
  - METASTASES TO LUNG [None]
  - PRURITUS [None]
  - PYREXIA [None]
  - RASH MACULAR [None]
  - VASCULAR CAUTERISATION [None]
